FAERS Safety Report 6137472-0 (Version None)
Quarter: 2009Q1

REPORT INFORMATION
  Report Type: 
  Country: None (occurrence: None)
  Receive Date: 20090326
  Receipt Date: 20090320
  Transmission Date: 20090719
  Serious: Yes (Other)
  Sender: FDA-Public Use
  Company Number: GRT 2009-10796

PATIENT
  Age: 69 Year
  Sex: Female

DRUGS (7)
  1. LIDOCAINE [Suspect]
     Indication: PAIN
     Dates: start: 20090106
  2. FENTANYL [Concomitant]
  3. LANSOPRAZOLE [Concomitant]
  4. TAMOXIFEN CITRATE [Concomitant]
  5. THYROXINE [Concomitant]
  6. GABAPENTIN [Concomitant]
  7. BOTULINUM TOXIN TYPE A [Concomitant]

REACTIONS (1)
  - DEAFNESS UNILATERAL [None]
